FAERS Safety Report 7656429-1 (Version None)
Quarter: 2011Q3

REPORT INFORMATION
  Report Type: 
  Country: None (occurrence: None)
  Receive Date: 20110804
  Receipt Date: 20110729
  Transmission Date: 20111222
  Serious: Yes (Disabling)
  Sender: FDA-Public Use
  Company Number: GB-GLAXOSMITHKLINE-B0737076A

PATIENT
  Age: 64 Year
  Sex: Male

DRUGS (6)
  1. LEVOTHYROXINE SODIUM [Concomitant]
     Indication: HYPOTHYROIDISM
     Dosage: 150MG PER DAY
     Dates: start: 20000101
  2. ATORVASTATIN CALCIUM [Concomitant]
     Indication: BLOOD CHOLESTEROL DECREASED
     Dosage: 40MG AT NIGHT
  3. LAMICTAL [Suspect]
     Indication: CONVULSION PROPHYLAXIS
     Dosage: 25MG THREE TIMES PER DAY
     Route: 065
     Dates: start: 20110525
  4. FUROSEMIDE [Concomitant]
     Indication: DIURETIC THERAPY
     Dosage: 20MG AS REQUIRED
     Dates: start: 20010101
  5. RANITIDINE [Concomitant]
     Indication: ANTACID THERAPY
     Dosage: 150MG PER DAY
     Dates: start: 20010101
  6. CARBAMAZEPINE [Concomitant]
     Indication: CONVULSION PROPHYLAXIS
     Dosage: 1TAB TWICE PER DAY
     Dates: start: 20010101

REACTIONS (8)
  - NAUSEA [None]
  - DIZZINESS [None]
  - HEADACHE [None]
  - BALANCE DISORDER [None]
  - SOMNOLENCE [None]
  - SKIN REACTION [None]
  - PYREXIA [None]
  - ARTHRALGIA [None]
